FAERS Safety Report 7996593-8 (Version None)
Quarter: 2011Q4

REPORT INFORMATION
  Report Type: 
  Country: None (occurrence: None)
  Receive Date: 20111221
  Receipt Date: 20111213
  Transmission Date: 20120403
  Serious: Yes (Hospitalization, Other)
  Sender: FDA-Public Use
  Company Number: US-BIOGENIDEC-2011BI045397

PATIENT
  Age: 50 Year
  Sex: Female
  Weight: 103 kg

DRUGS (8)
  1. ATENOLOL [Concomitant]
     Route: 048
  2. PROMETHAZINE HCL [Concomitant]
     Route: 048
  3. PREMPRO [Concomitant]
     Route: 048
  4. LORAZEPAM [Concomitant]
     Route: 048
  5. LEVETIRACETAM [Concomitant]
     Route: 048
  6. TIZANIDINE HCL [Concomitant]
     Route: 048
  7. CYMBALTA [Concomitant]
     Route: 048
  8. AVONEX [Suspect]
     Indication: MULTIPLE SCLEROSIS
     Route: 030
     Dates: start: 20111128

REACTIONS (3)
  - PARTIAL SEIZURES [None]
  - RESPIRATORY FAILURE [None]
  - PNEUMONIA [None]
